FAERS Safety Report 9536577 (Version 1)
Quarter: 2013Q2

REPORT INFORMATION
  Report Type: Spontaneous
  Country: US (occurrence: None)
  Receive Date: 20130507
  Receipt Date: 20130507
  Transmission Date: 20140414
  Serious: No
  Sender: FDA-Public Use
  Company Number: PHEH2012US016532

PATIENT
  Sex: 0

DRUGS (12)
  1. AFINITOR (RAD) UNKNOWN [Suspect]
     Indication: TUBEROUS SCLEROSIS
     Route: 048
     Dates: start: 20120813
  2. TIZAC (DILTIAZEM HYDROCHLORIDE) [Concomitant]
  3. ASPIRIN (ACETYLSALICYLIC ACID) [Concomitant]
  4. POTASSIUM CHLORIDE (POTASSIUM CHLORIDE) [Concomitant]
  5. LASIX (FUROSEMIDE) [Concomitant]
  6. ZOLOFT (SERTRALINE HYDROCHLORIDE) [Concomitant]
  7. VYTORIN (EZETIMIBE, SIMVASTATIN) [Concomitant]
  8. BENICAR (OLMESARTAN MEDOXOMIL) [Concomitant]
  9. TOPROL XL (METOPROLOL SUCCINATE) (100 MILLIGRAM) (METOPROLOL SUCCINATE) [Concomitant]
  10. PAXIL (PAROXETINE HYDROCHLORIDE) [Concomitant]
  11. DIAZEPAM (DIAZEPAM) [Concomitant]
  12. SIMVASTATIN (SIMVASTATIN) [Concomitant]

REACTIONS (15)
  - Depression [None]
  - Stress urinary incontinence [None]
  - Tongue blistering [None]
  - Dysuria [None]
  - Pollakiuria [None]
  - Flank pain [None]
  - Pain in extremity [None]
  - Dyslipidaemia [None]
  - Hypertension [None]
  - Bronchitis [None]
  - Decreased appetite [None]
  - Ageusia [None]
  - Oedema peripheral [None]
  - Stomatitis [None]
  - Pyrexia [None]
